FAERS Safety Report 7462933-1 (Version None)
Quarter: 2011Q2

REPORT INFORMATION
  Report Type: 
  Country: None (occurrence: None)
  Receive Date: 20110506
  Receipt Date: 20110414
  Transmission Date: 20111010
  Serious: No
  Sender: FDA-Public Use
  Company Number: US-BAYER-2011-032888

PATIENT
  Sex: Female

DRUGS (2)
  1. AVELOX [Suspect]
     Dosage: UNK
     Route: 048
     Dates: start: 20110414
  2. ROCEPHIN [Concomitant]
     Dosage: UNK
     Dates: start: 20110413

REACTIONS (2)
  - RASH ERYTHEMATOUS [None]
  - PRURITUS GENERALISED [None]
